FAERS Safety Report 5734049-3 (Version None)
Quarter: 2008Q2

REPORT INFORMATION
  Report Type: 
  Country: None (occurrence: None)
  Receive Date: 20080509
  Receipt Date: 20080429
  Transmission Date: 20081010
  Serious: Yes (Congenital Anomaly, Other)
  Sender: FDA-Public Use
  Company Number: GB-ABBOTT-06P-167-0351596-00

PATIENT
  Sex: Male

DRUGS (1)
  1. VALPROIC ACID [Suspect]
     Indication: DRUG EXPOSURE DURING PREGNANCY
     Route: 064

REACTIONS (19)
  - ABNORMAL BEHAVIOUR [None]
  - ATTENTION DEFICIT/HYPERACTIVITY DISORDER [None]
  - CARDIAC MURMUR [None]
  - CONGENITAL EYELID MALFORMATION [None]
  - CONGENITAL NOSE MALFORMATION [None]
  - CONGENITAL ORAL MALFORMATION [None]
  - DECREASED APPETITE [None]
  - DEVELOPMENTAL DELAY [None]
  - DYSMORPHISM [None]
  - ECZEMA [None]
  - FOETAL ANTICONVULSANT SYNDROME [None]
  - HEAD BANGING [None]
  - HEART DISEASE CONGENITAL [None]
  - HEART SOUNDS ABNORMAL [None]
  - HYPOKINESIA [None]
  - SCREAMING [None]
  - SPEECH DISORDER DEVELOPMENTAL [None]
  - TACHYPNOEA [None]
  - VENTRICULAR SEPTAL DEFECT [None]
